FAERS Safety Report 8060601-9 (Version None)
Quarter: 2012Q1

REPORT INFORMATION
  Report Type: 
  Country: None (occurrence: None)
  Receive Date: 20120120
  Receipt Date: 20120113
  Transmission Date: 20120608
  Serious: Yes (Hospitalization)
  Sender: FDA-Public Use
  Company Number: SE-B.I. PHARMACEUTICALS,INC./RIDGEFIELD-2011-SW-00425SW

PATIENT
  Sex: Male

DRUGS (11)
  1. ACETAMINOPHEN [Concomitant]
     Dosage: FORM: FILM-COATED TABLET
  2. FERROUS SULFATE TAB [Concomitant]
     Dosage: FORM: PROLONGED-RELEASE TABLET; STRENGTH: 100 MG FE2+
  3. ACETYLCYSTEIN MEDA [Concomitant]
     Dosage: 200 MG
  4. TRAMADOL HEXAL [Concomitant]
     Dosage: FORM: CAPSULE HARD
  5. OXYCODONE HCL [Concomitant]
     Dosage: FORMULATION: CAPSULE HARD
  6. PRAMIPEXOLE DIHYCHLLORIDE [Suspect]
     Dates: end: 20110714
  7. ENALAPRIL MALEATE [Concomitant]
  8. ATENOLOL [Concomitant]
  9. BACLOFEN [Suspect]
     Dates: end: 20110714
  10. ALLOPURINOL [Concomitant]
  11. HYDROXOCOBALAMIN [Concomitant]
     Dosage: FORM: FILM-COATED TABLET

REACTIONS (2)
  - ORTHOSTATIC HYPOTENSION [None]
  - MUSCULAR WEAKNESS [None]
